FAERS Safety Report 4630241-X (Version None)
Quarter: 2005Q2

REPORT INFORMATION
  Report Type: 
  Country: None (occurrence: None)
  Receive Date: 20050406
  Receipt Date: 20050322
  Transmission Date: 20051028
  Serious: Yes (Hospitalization)
  Sender: FDA-Public Use
  Company Number: DSA_26198_2005

PATIENT
  Age: 78 Year
  Sex: Male

DRUGS (5)
  1. DILTIAZEM [Suspect]
     Dosage: 240 MG Q DAY PO
     Route: 048
     Dates: start: 20050119, end: 20050212
  2. ZYLORIC [Suspect]
     Dosage: 300 MG Q DAY
     Route: 048
     Dates: start: 20050101, end: 20050212
  3. CARDURA [Suspect]
     Dosage: 4 MG Q DAY PO
     Route: 048
     Dates: start: 20050109, end: 20050212
  4. LASIX [Concomitant]
  5. COUMADIN [Concomitant]

REACTIONS (3)
  - AGRANULOCYTOSIS [None]
  - LICHEN PLANUS [None]
  - WHITE BLOOD CELL COUNT DECREASED [None]
